FAERS Safety Report 5503063-5 (Version None)
Quarter: 2007Q4

REPORT INFORMATION
  Report Type: 
  Country: None (occurrence: None)
  Receive Date: 20071031
  Receipt Date: 20071023
  Transmission Date: 20080405
  Serious: Yes (Other)
  Sender: FDA-Public Use
  Company Number: US-ROCHE-526922

PATIENT
  Sex: Female

DRUGS (2)
  1. BONIVA [Suspect]
     Indication: DRUG USE FOR UNKNOWN INDICATION
     Dosage: TAKEN ON A WEEKLY BASIS.
     Route: 065
     Dates: start: 20040101
  2. BONIVA [Suspect]
     Dosage: TAKEN ON A MONTHLY BASIS.
     Route: 065
     Dates: end: 20071001

REACTIONS (4)
  - DYSPHAGIA [None]
  - HIP FRACTURE [None]
  - OESOPHAGEAL DISORDER [None]
  - PELVIC FRACTURE [None]
